FAERS Safety Report 13769013 (Version 2)
Quarter: 2018Q3

REPORT INFORMATION
  Report Type: Spontaneous
  Country: US (occurrence: US)
  Receive Date: 20170719
  Receipt Date: 20180717
  Transmission Date: 20181010
  Serious: No
  Sender: FDA-Public Use
  Company Number: US-BAUSCH-BL-2016-015523

PATIENT
  Age: 41 Year
  Sex: Female

DRUGS (1)
  1. XIFAXAN [Suspect]
     Active Substance: RIFAXIMIN
     Indication: GASTROINTESTINAL BACTERIAL OVERGROWTH
     Route: 048

REACTIONS (5)
  - Pain [Unknown]
  - Dehydration [Unknown]
  - Fatigue [Unknown]
  - Off label use [Recovered/Resolved]
  - Bedridden [Unknown]
